FAERS Safety Report 5799352-X (Version None)
Quarter: 2008Q3

REPORT INFORMATION
  Report Type: 
  Country: None (occurrence: None)
  Receive Date: 20080702
  Receipt Date: 20080624
  Transmission Date: 20090109
  Serious: Yes (Hospitalization, Other)
  Sender: FDA-Public Use
  Company Number: US-PFIZER INC-2008053417

PATIENT
  Sex: Female
  Weight: 134 kg

DRUGS (3)
  1. CHANTIX [Suspect]
     Indication: SMOKING CESSATION THERAPY
  2. DIFLUCAN [Concomitant]
  3. DOCUSATE [Concomitant]

REACTIONS (8)
  - CELLULITIS [None]
  - DEPRESSION [None]
  - EPILEPSY [None]
  - HOMICIDAL IDEATION [None]
  - NEPHROLITHIASIS [None]
  - NEUROPATHY PERIPHERAL [None]
  - PAIN [None]
  - SUICIDAL IDEATION [None]
